FAERS Safety Report 9958030 (Version 1)
Quarter: 2014Q1

REPORT INFORMATION
  Report Type: Report from Study
  Country: US (occurrence: US)
  Receive Date: 20140304
  Receipt Date: 20140304
  Transmission Date: 20141002
  Serious: No
  Sender: FDA-Public Use
  Company Number: US-ABBVIE-13P-163-1094290-00

PATIENT
  Sex: Male
  Weight: 59.02 kg

DRUGS (7)
  1. HUMIRA [Suspect]
     Indication: CROHN^S DISEASE
     Route: 058
     Dates: start: 201211, end: 201211
  2. HUMIRA [Suspect]
     Route: 058
     Dates: start: 201212, end: 201212
  3. HUMIRA [Suspect]
     Route: 058
     Dates: start: 201212, end: 201301
  4. MULTIPLE VITAMINS [Concomitant]
     Indication: VITAMIN SUPPLEMENTATION
  5. PROTONIX [Concomitant]
     Indication: DYSPEPSIA
  6. FOLATE SUPPLEMENT [Concomitant]
     Indication: PRODUCT USED FOR UNKNOWN INDICATION
  7. VITAMIN B12 [Concomitant]
     Indication: VITAMIN SUPPLEMENTATION
     Route: 050

REACTIONS (5)
  - Skin discolouration [Not Recovered/Not Resolved]
  - Abscess [Recovered/Resolved]
  - Staphylococcal infection [Recovered/Resolved]
  - Staphylococcal infection [Recovered/Resolved]
  - Streptococcal infection [Recovered/Resolved]
